FAERS Safety Report 9258217 (Version 3)
Quarter: 2013Q3

REPORT INFORMATION
  Report Type: Spontaneous
  Country: US (occurrence: US)
  Receive Date: 20130426
  Receipt Date: 20130702
  Transmission Date: 20140515
  Serious: Yes (Hospitalization, Other)
  Sender: FDA-Public Use
  Company Number: US-PFIZER INC-2013127269

PATIENT
  Sex: Female

DRUGS (1)
  1. LIPITOR [Suspect]
     Dosage: UNK

REACTIONS (7)
  - Road traffic accident [Unknown]
  - Mental impairment [Unknown]
  - Concussion [Unknown]
  - Hearing impaired [Unknown]
  - Memory impairment [Unknown]
  - Speech disorder [Unknown]
  - Headache [Unknown]
